FAERS Safety Report 9200366 (Version 1)
Quarter: 2013Q1

REPORT INFORMATION
  Report Type: Spontaneous
  Country: GB (occurrence: GB)
  Receive Date: 20130329
  Receipt Date: 20130329
  Transmission Date: 20140127
  Serious: Yes (Life-Threatening, Hospitalization)
  Sender: FDA-Public Use
  Company Number: GB-PFIZER INC-HQWYE801130JUN03

PATIENT
  Age: 35 Year
  Sex: Female

DRUGS (4)
  1. IBUPROFEN [Suspect]
     Indication: TOOTHACHE
     Dosage: 200 MG, 1X/DAY
     Route: 048
     Dates: start: 20030609, end: 20030609
  2. MOTRIN [Suspect]
     Indication: TOOTHACHE
     Dosage: 200 MG, UNK
     Route: 048
     Dates: start: 20030609, end: 20030609
  3. BECLOMETASONE [Concomitant]
     Indication: ASTHMA
     Dosage: 250 UG, UNK
     Route: 055
  4. VENTOLIN [Concomitant]
     Dosage: UNK
     Route: 055

REACTIONS (2)
  - Respiratory failure [Recovering/Resolving]
  - Bronchospasm [Recovering/Resolving]
